FAERS Safety Report 24097870 (Version 2)
Quarter: 2024Q3

REPORT INFORMATION
  Report Type: Spontaneous
  Country: US (occurrence: US)
  Receive Date: 20240716
  Receipt Date: 20240723
  Transmission Date: 20241016
  Serious: No
  Sender: JOHNSON AND JOHNSON
  Company Number: US-JNJFOC-20240735393

PATIENT
  Sex: Female

DRUGS (1)
  1. SPRAVATO [Suspect]
     Active Substance: ESKETAMINE
     Indication: Depression

REACTIONS (7)
  - Off label use [Unknown]
  - Headache [Unknown]
  - Feeling jittery [Unknown]
  - Withdrawal syndrome [Unknown]
  - Therapeutic response decreased [Unknown]
  - Stress [Unknown]
  - Gastrointestinal disorder [Unknown]
